FAERS Safety Report 26126096 (Version 1)
Quarter: 2025Q4

REPORT INFORMATION
  Report Type: Spontaneous
  Country: US (occurrence: US)
  Receive Date: 20251205
  Receipt Date: 20251205
  Transmission Date: 20260117
  Serious: Yes (Death)
  Sender: PFIZER
  Company Number: US-PFIZER INC-202500234986

PATIENT
  Age: 40 Year
  Sex: Male

DRUGS (25)
  1. MEROPENEM [Suspect]
     Active Substance: MEROPENEM
     Indication: Pseudomonas infection
     Dosage: UNK
     Dates: start: 202412, end: 20241213
  2. AVIBACTAM SODIUM\CEFTAZIDIME [Suspect]
     Active Substance: AVIBACTAM SODIUM\CEFTAZIDIME
     Indication: Pseudomonas infection
     Dosage: UNK
  3. AVIBACTAM SODIUM\CEFTAZIDIME [Suspect]
     Active Substance: AVIBACTAM SODIUM\CEFTAZIDIME
     Indication: Pneumonia necrotising
  4. ERYTHROMYCIN [Suspect]
     Active Substance: ERYTHROMYCIN
     Indication: Pseudomonas infection
     Dosage: UNK
  5. ERYTHROMYCIN [Suspect]
     Active Substance: ERYTHROMYCIN
     Indication: Pneumonia necrotising
  6. TOBRAMYCIN [Suspect]
     Active Substance: TOBRAMYCIN
     Indication: Pseudomonas infection
     Dosage: UNK
     Route: 042
  7. TOBRAMYCIN [Suspect]
     Active Substance: TOBRAMYCIN
     Indication: Pneumonia necrotising
  8. CIPROFLOXACIN [Suspect]
     Active Substance: CIPROFLOXACIN
     Indication: Pseudomonas infection
     Dosage: UNK
  9. CIPROFLOXACIN [Suspect]
     Active Substance: CIPROFLOXACIN
     Indication: Pneumonia necrotising
  10. AZITHROMYCIN [Suspect]
     Active Substance: AZITHROMYCIN
     Indication: Pseudomonas infection
     Dosage: UNK
  11. AZITHROMYCIN [Suspect]
     Active Substance: AZITHROMYCIN
     Indication: Pneumonia necrotising
  12. CEFTOLOZANE SULFATE\TAZOBACTAM SODIUM [Suspect]
     Active Substance: CEFTOLOZANE SULFATE\TAZOBACTAM SODIUM
     Indication: Pseudomonas infection
     Dosage: UNK
     Dates: start: 20241213, end: 20241226
  13. CEFTOLOZANE SULFATE\TAZOBACTAM SODIUM [Suspect]
     Active Substance: CEFTOLOZANE SULFATE\TAZOBACTAM SODIUM
     Indication: Pneumonia necrotising
  14. IMIPENEM [Suspect]
     Active Substance: IMIPENEM
     Indication: Pseudomonas infection
     Dosage: UNK
     Dates: start: 20241226, end: 202501
  15. IMIPENEM [Suspect]
     Active Substance: IMIPENEM
     Indication: Pneumonia necrotising
     Dosage: UNK
     Dates: start: 202502, end: 202503
  16. RELEBACTAM [Suspect]
     Active Substance: RELEBACTAM
     Indication: Pseudomonas infection
     Dosage: UNK
     Dates: start: 20241226, end: 202501
  17. RELEBACTAM [Suspect]
     Active Substance: RELEBACTAM
     Indication: Pneumonia necrotising
     Dosage: UNK
     Dates: start: 202502, end: 202503
  18. CEFIDEROCOL [Suspect]
     Active Substance: CEFIDEROCOL
     Indication: Pseudomonas infection
     Dosage: UNK
     Route: 042
     Dates: start: 202501, end: 202502
  19. CEFIDEROCOL [Suspect]
     Active Substance: CEFIDEROCOL
     Indication: Pneumonia necrotising
  20. CEFEPIME [Suspect]
     Active Substance: CEFEPIME HYDROCHLORIDE
     Indication: Pseudomonas infection
     Dosage: UNK
     Dates: start: 202503, end: 20250328
  21. CEFEPIME [Suspect]
     Active Substance: CEFEPIME HYDROCHLORIDE
     Indication: Pneumonia necrotising
  22. ZIDEBACTAM [Suspect]
     Active Substance: ZIDEBACTAM
     Indication: Pseudomonas infection
     Dosage: UNK
     Dates: start: 202503, end: 20250328
  23. ZIDEBACTAM [Suspect]
     Active Substance: ZIDEBACTAM
     Indication: Pneumonia necrotising
  24. AMPICILLIN [Suspect]
     Active Substance: AMPICILLIN
     Indication: Pseudomonas infection
     Dosage: UNK
  25. AMPICILLIN [Suspect]
     Active Substance: AMPICILLIN
     Indication: Pneumonia necrotising

REACTIONS (1)
  - Pathogen resistance [Fatal]
